FAERS Safety Report 10355324 (Version 2)
Quarter: 2014Q3

REPORT INFORMATION
  Report Type: Spontaneous
  Country: JP (occurrence: JP)
  Receive Date: 20140731
  Receipt Date: 20140806
  Transmission Date: 20150326
  Serious: Yes (Death, Other)
  Sender: FDA-Public Use
  Company Number: JP-PFIZER INC-2014212492

PATIENT
  Age: 80 Year

DRUGS (5)
  1. SERMION [Suspect]
     Active Substance: NICERGOLINE
     Indication: CEREBRAL INFARCTION
     Dosage: UNK
     Route: 048
  2. NORVASC [Suspect]
     Active Substance: AMLODIPINE BESYLATE
     Indication: HYPERTENSION
     Dosage: UNK
     Route: 048
  3. ARICEPT [Suspect]
     Active Substance: DONEPEZIL HYDROCHLORIDE
     Dosage: 5 MG, 2X/DAY
     Route: 048
     Dates: start: 201301, end: 20140721
  4. ARICEPT [Suspect]
     Active Substance: DONEPEZIL HYDROCHLORIDE
     Indication: DEMENTIA ALZHEIMER^S TYPE
     Dosage: 5 MG, 1X/DAY
     Route: 048
     Dates: start: 20110524, end: 201301
  5. CARNACULIN [Suspect]
     Active Substance: KALLIDINOGENASE
     Indication: CEREBRAL INFARCTION
     Dosage: UNK
     Route: 048

REACTIONS (2)
  - Dementia Alzheimer^s type [Unknown]
  - Cerebral haemorrhage [Fatal]

NARRATIVE: CASE EVENT DATE: 201301
